FAERS Safety Report 9432488 (Version 3)
Quarter: 2013Q3

REPORT INFORMATION
  Report Type: Spontaneous
  Country: CO (occurrence: CO)
  Receive Date: 20130731
  Receipt Date: 20130906
  Transmission Date: 20140515
  Serious: Yes (Hospitalization, Other)
  Sender: FDA-Public Use
  Company Number: CO-NOVOPROD-383889

PATIENT
  Age: 66 Year
  Sex: Male
  Weight: 85 kg

DRUGS (8)
  1. LEVEMIR FLEXPEN [Suspect]
     Indication: TYPE 2 DIABETES MELLITUS
     Dosage: 10 IU, QD (NIGHT)
     Route: 065
     Dates: start: 20130712
  2. LEVEMIR FLEXPEN [Suspect]
     Dosage: 5 IU, QD
     Route: 065
     Dates: end: 20130718
  3. LOSARTAN [Concomitant]
     Indication: HYPERTENSION
     Dosage: 100 MG, BID
     Route: 065
  4. AMLODIPIN                          /00972401/ [Concomitant]
     Indication: HYPERTENSION
     Dosage: 5 MG, BID
     Route: 065
  5. GLIBENCLAMIDE [Concomitant]
     Dosage: 5 MG 1 TAB MACERATED
     Route: 048
  6. FUROSEMIDE [Concomitant]
     Indication: HYPERTENSION
     Dosage: 1 TAB, QD
  7. ASA [Concomitant]
     Dosage: 1 PER DAY
  8. FENOFIBRATE [Concomitant]
     Indication: HYPERTENSION

REACTIONS (5)
  - Hypertensive crisis [Recovered/Resolved]
  - Renal failure [Unknown]
  - Blood glucose increased [Unknown]
  - Abdominal pain upper [Recovered/Resolved]
  - Tachycardia [Not Recovered/Not Resolved]
